FAERS Safety Report 19944865 (Version 1)
Quarter: 2021Q4

REPORT INFORMATION
  Report Type: Spontaneous
  Country: RU (occurrence: RU)
  Receive Date: 20211011
  Receipt Date: 20211011
  Transmission Date: 20220304
  Serious: Yes (Other)
  Sender: FDA-Public Use
  Company Number: RU-BIOMARINAP-RU-2021-138977

PATIENT
  Age: 12 Year
  Sex: Male

DRUGS (5)
  1. VIMIZIM [Suspect]
     Active Substance: ELOSULFASE ALFA
     Indication: Mucopolysaccharidosis IV
     Dosage: 2 MILLIGRAM/KILOGRAM, QW
     Route: 042
  2. CLEMASTINE FUMARATE [Concomitant]
     Active Substance: CLEMASTINE FUMARATE
     Indication: Premedication
  3. METHYLPREDNISOLONE [Concomitant]
     Active Substance: METHYLPREDNISOLONE
     Indication: Premedication
     Route: 030
  4. RANITIDINE [Concomitant]
     Active Substance: RANITIDINE
     Indication: Premedication
     Route: 048
  5. CHLOROPYRAMINE HYDROCHLORIDE [Concomitant]
     Active Substance: CHLOROPYRAMINE HYDROCHLORIDE
     Indication: Premedication

REACTIONS (6)
  - Spinal stenosis [Unknown]
  - Spinal deformity [Unknown]
  - Atlantoaxial instability [Unknown]
  - Myelopathy [Unknown]
  - Platyspondylia [Unknown]
  - Intervertebral disc space narrowing [Unknown]
